FAERS Safety Report 24140545 (Version 1)
Quarter: 2024Q3

REPORT INFORMATION
  Report Type: Spontaneous
  Country: US (occurrence: US)
  Receive Date: 20240726
  Receipt Date: 20240726
  Transmission Date: 20241017
  Serious: Yes (Hospitalization, Other)
  Sender: Unknown Manufacturer
  Company Number: US-862174955-ML2024-04079

PATIENT
  Age: 60 Year
  Sex: Male

DRUGS (6)
  1. DEXAMETHASONE [Suspect]
     Active Substance: DEXAMETHASONE
     Indication: Uveitis
     Route: 031
  2. sub-Tenon^s TRIAMCINOLONE [Concomitant]
     Indication: Uveitis
     Route: 031
  3. DIFLUPREDNATE [Concomitant]
     Active Substance: DIFLUPREDNATE
     Indication: Uveitis
     Route: 061
  4. ATROPINE [Concomitant]
     Active Substance: ATROPINE
     Indication: Uveitis
     Route: 061
  5. COSOPT [Concomitant]
     Active Substance: DORZOLAMIDE HYDROCHLORIDE\TIMOLOL MALEATE
     Indication: Uveitis
     Route: 061
  6. UNSPECIFIED INGREDIENT [Concomitant]
     Active Substance: UNSPECIFIED INGREDIENT
     Indication: Uveitis
     Route: 061

REACTIONS (1)
  - Cytomegalovirus chorioretinitis [Recovering/Resolving]
